FAERS Safety Report 22142509 (Version 1)
Quarter: 2023Q1

REPORT INFORMATION
  Report Type: Spontaneous
  Country: US (occurrence: US)
  Receive Date: 20230327
  Receipt Date: 20230327
  Transmission Date: 20230417
  Serious: No
  Sender: FDA-Public Use
  Company Number: US-BAYER-2023A034547

PATIENT
  Age: 69 Year
  Sex: Female

DRUGS (2)
  1. CHILDREN ASTEPRO ALLERGY [Suspect]
     Active Substance: AZELASTINE HYDROCHLORIDE
     Indication: Allergic respiratory symptom
     Dosage: UNK
     Dates: start: 20230314, end: 20230314
  2. CHILDREN ASTEPRO ALLERGY [Suspect]
     Active Substance: AZELASTINE HYDROCHLORIDE
     Indication: Nasopharyngitis

REACTIONS (1)
  - Rhinorrhoea [Unknown]
